FAERS Safety Report 8001510-0 (Version None)
Quarter: 2011Q4

REPORT INFORMATION
  Report Type: 
  Country: None (occurrence: None)
  Receive Date: 20111222
  Receipt Date: 20111216
  Transmission Date: 20120403
  Serious: Yes (Death, Life-Threatening)
  Sender: FDA-Public Use
  Company Number: FR-JNJFOC-20111207238

PATIENT
  Age: 62 Year
  Sex: Female

DRUGS (28)
  1. ALDACTONE [Suspect]
     Indication: CARDIAC FAILURE
     Route: 048
     Dates: start: 20110205, end: 20110216
  2. FLAGYL [Concomitant]
     Route: 065
     Dates: start: 20110118, end: 20110217
  3. PERINDOPRIL ERBUMINE [Suspect]
     Indication: CARDIAC FAILURE
     Route: 048
     Dates: start: 20110206, end: 20110217
  4. BISOPROLOL FUMARATE [Concomitant]
     Route: 065
     Dates: start: 20110205
  5. CEFTRIAXONE [Suspect]
     Indication: LUNG DISORDER
     Route: 042
     Dates: start: 20110209, end: 20110212
  6. VALACICLOVIR [Suspect]
     Indication: PRODUCT USED FOR UNKNOWN INDICATION
     Route: 048
     Dates: start: 20110106, end: 20110117
  7. VALACICLOVIR [Suspect]
     Route: 048
     Dates: start: 20110208, end: 20110217
  8. CLONAZEPAM [Concomitant]
     Route: 065
  9. RITUXIMAB [Concomitant]
     Route: 065
     Dates: start: 20101101, end: 20101201
  10. CYTARABINE [Concomitant]
     Route: 065
     Dates: start: 20101208, end: 20101211
  11. AMLODIPINE BESYLATE [Suspect]
     Indication: PRODUCT USED FOR UNKNOWN INDICATION
     Route: 048
     Dates: start: 20110205, end: 20110214
  12. IFOSFAMIDE [Concomitant]
     Route: 065
     Dates: start: 20101101, end: 20101101
  13. ETOPOSIDE [Concomitant]
     Route: 065
     Dates: start: 20101101, end: 20101101
  14. CIPROFLAXACIN [Concomitant]
     Route: 065
     Dates: start: 20110119, end: 20110125
  15. PIPERACILLIN AND TAZOBACTAM [Concomitant]
     Route: 065
     Dates: start: 20110112, end: 20110124
  16. VALACICLOVIR [Suspect]
     Route: 048
     Dates: start: 20110201, end: 20110204
  17. AUGMENTIN [Suspect]
     Route: 042
     Dates: start: 20110208, end: 20110209
  18. FLUCONAZOLE [Concomitant]
     Route: 065
     Dates: start: 20110106, end: 20110204
  19. BICNU [Concomitant]
     Route: 065
     Dates: start: 20101207, end: 20101207
  20. TOBRAMYCIN [Concomitant]
     Route: 065
     Dates: start: 20110116, end: 20110124
  21. IMIPENEM/CILASTATIN [Concomitant]
     Route: 065
     Dates: start: 20110125, end: 20110128
  22. LEVOFLOXACIN [Suspect]
     Indication: LUNG DISORDER
     Route: 048
     Dates: start: 20110207, end: 20110215
  23. AUGMENTIN [Suspect]
     Indication: FEBRILE BONE MARROW APLASIA
     Route: 048
     Dates: start: 20110129, end: 20110204
  24. PLERIXAFOR [Concomitant]
     Route: 065
     Dates: start: 20101201, end: 20101201
  25. VANCOMYCIN HYCHLORIDE [Concomitant]
     Route: 065
     Dates: start: 20110124, end: 20110220
  26. LASIX [Concomitant]
     Route: 065
     Dates: start: 20110131
  27. GRANOCYTE [Concomitant]
     Route: 065
     Dates: start: 20101201, end: 20101201
  28. MELPHALAN HYDROCHLORIDE [Concomitant]
     Route: 065
     Dates: start: 20101212, end: 20101212

REACTIONS (10)
  - GASTROINTESTINAL HAEMORRHAGE [None]
  - RENAL FAILURE [None]
  - DRUG RASH WITH EOSINOPHILIA AND SYSTEMIC SYMPTOMS [None]
  - MULTI-ORGAN FAILURE [None]
  - ACUTE GRAFT VERSUS HOST DISEASE [None]
  - RASH PAPULAR [None]
  - EOSINOPHILIA [None]
  - CARDIAC FAILURE [None]
  - PYREXIA [None]
  - HEPATITIS CHOLESTATIC [None]
